FAERS Safety Report 4929135-1 (Version None)
Quarter: 2006Q1

REPORT INFORMATION
  Report Type: 
  Country: None (occurrence: None)
  Receive Date: 20060130
  Receipt Date: 20051021
  Transmission Date: 20060701
  Serious: Yes (Hospitalization)
  Sender: FDA-Public Use
  Company Number: RB-2223-2005

PATIENT
  Age: 51 Year
  Sex: 0

DRUGS (6)
  1. SUBOXONE [Suspect]
     Indication: DRUG DEPENDENCE
     Dosage: 8 MG QID SL
     Route: 060
     Dates: start: 20050826, end: 20050827
  2. SUBOXONE [Suspect]
     Indication: DRUG DEPENDENCE
     Dosage: 8 MG TID SL
     Route: 060
     Dates: start: 20050828, end: 20050926
  3. SUBOXONE [Suspect]
     Indication: DRUG DEPENDENCE
     Dosage: 8 MG BID SL
     Route: 060
     Dates: start: 20050927, end: 20051010
  4. SUBOXONE [Suspect]
     Indication: DRUG DEPENDENCE
     Dosage: 8 MG TID SL
     Route: 060
     Dates: start: 20051020
  5. DIAZEPAM [Concomitant]
  6. NALTREXONE [Concomitant]

REACTIONS (1)
  - DRUG WITHDRAWAL SYNDROME [None]
